FAERS Safety Report 10549373 (Version 3)
Quarter: 2015Q2

REPORT INFORMATION
  Report Type: Spontaneous
  Country: US (occurrence: US)
  Receive Date: 20141028
  Receipt Date: 20150608
  Transmission Date: 20150821
  Serious: Yes (Hospitalization)
  Sender: FDA-Public Use
  Company Number: US-BAYER-2014-158899

PATIENT
  Age: 22 Year
  Sex: Female
  Weight: 117.91 kg

DRUGS (2)
  1. MIRENA [Suspect]
     Active Substance: LEVONORGESTREL
     Indication: CONTRACEPTION
     Dosage: 20 MCG/24HR, CONT
     Route: 015
     Dates: start: 20040421, end: 20090807
  2. MIRENA [Suspect]
     Active Substance: LEVONORGESTREL
     Indication: MENORRHAGIA

REACTIONS (15)
  - Internal injury [None]
  - Device misuse [None]
  - Abdominal pain [None]
  - Injury [None]
  - Anxiety [None]
  - Depressed mood [None]
  - Off label use of device [None]
  - Uterine perforation [None]
  - Genital haemorrhage [None]
  - Emotional distress [None]
  - Depression [None]
  - Medical device discomfort [None]
  - Fear [None]
  - Pelvic pain [None]
  - Device issue [None]

NARRATIVE: CASE EVENT DATE: 200603
